FAERS Safety Report 5083698-7 (Version None)
Quarter: 2006Q3

REPORT INFORMATION
  Report Type: 
  Country: None (occurrence: None)
  Receive Date: 20060818
  Receipt Date: 20060301
  Transmission Date: 20061208
  Serious: Yes (Hospitalization)
  Sender: FDA-Public Use
  Company Number: US-ROCHE-438849

PATIENT
  Age: 18 Year
  Sex: Male
  Weight: 60.8 kg

DRUGS (1)
  1. ACCUTANE [Suspect]
     Indication: ACNE
     Route: 048
     Dates: start: 19950911, end: 19960215

REACTIONS (37)
  - ABDOMINAL WALL ABSCESS [None]
  - ABSCESS [None]
  - ATELECTASIS [None]
  - CARDIAC FAILURE CONGESTIVE [None]
  - CHORIORETINOPATHY [None]
  - COLITIS [None]
  - CROHN'S DISEASE [None]
  - CULTURE WOUND POSITIVE [None]
  - DEPRESSION [None]
  - DYSPNOEA EXERTIONAL [None]
  - ENTEROCOLITIS [None]
  - FATIGUE [None]
  - FISTULA [None]
  - FLATULENCE [None]
  - GASTROENTERITIS VIRAL [None]
  - GASTROINTESTINAL STOMA COMPLICATION [None]
  - GASTROOESOPHAGEAL REFLUX DISEASE [None]
  - ILEUS [None]
  - INFLAMMATION [None]
  - INFLAMMATORY BOWEL DISEASE [None]
  - IRON BINDING CAPACITY TOTAL DECREASED [None]
  - IRON DEFICIENCY ANAEMIA [None]
  - LOBAR PNEUMONIA [None]
  - LYMPHADENOPATHY [None]
  - MACULAR OEDEMA [None]
  - PANCREATITIS [None]
  - PHOTOPHOBIA [None]
  - PLEURAL EFFUSION [None]
  - PNEUMONIA [None]
  - POST PROCEDURAL COMPLICATION [None]
  - POSTOPERATIVE ABSCESS [None]
  - PYREXIA [None]
  - RECTAL HAEMORRHAGE [None]
  - RETINOPATHY [None]
  - STAPHYLOCOCCAL INFECTION [None]
  - SUBCUTANEOUS ABSCESS [None]
  - SUICIDAL IDEATION [None]
